FAERS Safety Report 9565298 (Version 3)
Quarter: 2013Q4

REPORT INFORMATION
  Report Type: Report from Study
  Country: US (occurrence: US)
  Receive Date: 20130930
  Receipt Date: 20131231
  Transmission Date: 20140711
  Serious: Yes (Hospitalization, Other)
  Sender: FDA-Public Use
  Company Number: US-ABBVIE-13P-163-1076865-00

PATIENT
  Age: 78 Year
  Sex: Female
  Weight: 60.84 kg

DRUGS (11)
  1. HUMIRA [Suspect]
     Indication: PSORIASIS
  2. HUMIRA [Suspect]
  3. REMICADE [Suspect]
     Indication: PRODUCT USED FOR UNKNOWN INDICATION
     Dates: start: 201208, end: 201301
  4. BACTRIM [Suspect]
     Indication: INFECTION
  5. METHOTREXATE [Concomitant]
     Indication: RHEUMATOID ARTHRITIS
     Dosage: 10 TAB WEEKLY
     Dates: end: 201306
  6. METHOTREXATE [Concomitant]
     Dosage: 8 TABLETS WEEKLY
     Dates: start: 201306
  7. LISINOPRIL [Concomitant]
     Indication: HYPERTENSION
  8. HYDROCHLOROTHIAZIDE [Concomitant]
     Indication: BLOOD PRESSURE ABNORMAL
     Dosage: DAILY
  9. SYNTHROID [Concomitant]
     Indication: HYPOTHYROIDISM
  10. FOLATE [Concomitant]
     Indication: PRODUCT USED FOR UNKNOWN INDICATION
  11. ASPIRIN [Concomitant]
     Indication: PRODUCT USED FOR UNKNOWN INDICATION

REACTIONS (13)
  - Memory impairment [Unknown]
  - Cerebrovascular accident [Recovered/Resolved]
  - Cerebrovascular accident [Not Recovered/Not Resolved]
  - Drug ineffective [Unknown]
  - Injection site pain [Not Recovered/Not Resolved]
  - Injection site nodule [Unknown]
  - Incorrect dose administered [Unknown]
  - Device malfunction [Unknown]
  - Injection site pain [Not Recovered/Not Resolved]
  - Localised infection [Recovering/Resolving]
  - Unevaluable event [Not Recovered/Not Resolved]
  - Adverse drug reaction [Unknown]
  - Skin lesion [Unknown]
